FAERS Safety Report 9988788 (Version 1)
Quarter: 2014Q1

REPORT INFORMATION
  Report Type: Spontaneous
  Country: TR (occurrence: TR)
  Receive Date: 20140310
  Receipt Date: 20140310
  Transmission Date: 20141002
  Serious: Yes (Hospitalization, Other)
  Sender: FDA-Public Use
  Company Number: TR-PAR PHARMACEUTICAL, INC-2014SCPR008949

PATIENT
  Sex: 0

DRUGS (5)
  1. LAMOTRIGINE [Suspect]
     Indication: DEPRESSION
     Dosage: 25 MG, / DAY
     Route: 048
  2. LAMOTRIGINE [Interacting]
     Dosage: 100 MG, / DAY
     Route: 048
  3. LAMOTRIGINE [Interacting]
     Dosage: 50 MG, / DAY
     Route: 048
  4. OLANZAPINE [Interacting]
     Indication: BIPOLAR II DISORDER
     Dosage: 5 MG, / DAY
     Route: 048
  5. CITALOPRAM [Concomitant]
     Indication: BIPOLAR II DISORDER
     Dosage: 20 MG, / DAY
     Route: 065

REACTIONS (2)
  - Obsessive thoughts [Recovered/Resolved]
  - Drug interaction [Unknown]
